FAERS Safety Report 7766266-5 (Version None)
Quarter: 2011Q3

REPORT INFORMATION
  Report Type: 
  Country: None (occurrence: None)
  Receive Date: 20110922
  Receipt Date: 20110915
  Transmission Date: 20111222
  Serious: Yes (Death, Hospitalization, Other)
  Sender: FDA-Public Use
  Company Number: US-BIOGENIDEC-2010BI027966

PATIENT
  Sex: Female
  Weight: 90 kg

DRUGS (1)
  1. TYSABRI [Suspect]
     Indication: MULTIPLE SCLEROSIS
     Route: 042
     Dates: start: 20080716, end: 20100715

REACTIONS (8)
  - RESPIRATORY FAILURE [None]
  - CARDIAC FAILURE CONGESTIVE [None]
  - URINARY TRACT INFECTION [None]
  - GASTROENTERITIS [None]
  - DYSPHAGIA [None]
  - PNEUMONIA ASPIRATION [None]
  - ASPIRATION [None]
  - UROSEPSIS [None]
